FAERS Safety Report 13410517 (Version 2)
Quarter: 2017Q4

REPORT INFORMATION
  Report Type: Spontaneous
  Country: US (occurrence: US)
  Receive Date: 20170406
  Receipt Date: 20171123
  Transmission Date: 20180320
  Serious: No
  Sender: FDA-Public Use
  Company Number: US-JNJFOC-20161009498

PATIENT
  Sex: Male

DRUGS (2)
  1. RISPERDAL [Suspect]
     Active Substance: RISPERIDONE
     Indication: MAJOR DEPRESSION
     Dosage: VARYING DOSES OF 1 MG, 0.25 MG, 0.5 MG
     Route: 048
     Dates: start: 20030805, end: 20080121
  2. RISPERDAL [Suspect]
     Active Substance: RISPERIDONE
     Indication: PSYCHOTIC DISORDER
     Dosage: VARYING DOSES OF 1 MG, 0.25 MG, 0.5 MG
     Route: 048
     Dates: start: 20030805, end: 20080121

REACTIONS (2)
  - Emotional disorder [Unknown]
  - Gynaecomastia [Unknown]
